FAERS Safety Report 5702977-0 (Version None)
Quarter: 2008Q2

REPORT INFORMATION
  Report Type: 
  Country: None (occurrence: None)
  Receive Date: 20080411
  Receipt Date: 20080403
  Transmission Date: 20081010
  Serious: Yes (Hospitalization)
  Sender: FDA-Public Use
  Company Number: US-ABBOTT-08P-163-0445328-00

PATIENT
  Sex: Female
  Weight: 88.53 kg

DRUGS (3)
  1. HUMIRA [Suspect]
     Indication: RHEUMATOID ARTHRITIS
     Route: 058
     Dates: start: 20060101, end: 20060101
  2. HUMIRA [Suspect]
     Route: 058
     Dates: start: 20060101
  3. ORLISTAT [Concomitant]
     Indication: WEIGHT CONTROL
     Route: 048
     Dates: start: 20070701

REACTIONS (4)
  - ARTHRALGIA [None]
  - BONE FORMATION INCREASED [None]
  - DRUG INEFFECTIVE [None]
  - INTERVERTEBRAL DISC DEGENERATION [None]
